FAERS Safety Report 26131065 (Version 2)
Quarter: 2025Q4

REPORT INFORMATION
  Report Type: Spontaneous
  Country: US (occurrence: US)
  Receive Date: 20251208
  Receipt Date: 20251221
  Transmission Date: 20260118
  Serious: No
  Sender: SANOFI AVENTIS
  Company Number: US-SA-2025SA364316

PATIENT
  Age: 75 Year
  Sex: Male

DRUGS (15)
  1. DUPIXENT [Suspect]
     Active Substance: DUPILUMAB
     Indication: Dermatitis allergic
     Dosage: 300 MG
     Route: 058
     Dates: start: 20251029, end: 2025
  2. DUPIXENT [Suspect]
     Active Substance: DUPILUMAB
     Indication: Asthma
  3. ATORVASTATIN [Suspect]
     Active Substance: ATORVASTATIN
     Dosage: UNK
     Dates: end: 2025
  4. COLACE [Concomitant]
     Active Substance: DOCUSATE SODIUM
  5. CLOBETASOL [Concomitant]
     Active Substance: CLOBETASOL
  6. POTASSIUM [Concomitant]
     Active Substance: POTASSIUM
  7. KEFLEX [Concomitant]
     Active Substance: CEPHALEXIN
  8. PATADAY [Concomitant]
     Active Substance: OLOPATADINE HYDROCHLORIDE
  9. TACROLIMUS [Concomitant]
     Active Substance: TACROLIMUS
  10. MUROCEL [Concomitant]
     Active Substance: METHYLCELLULOSE (4000 MPA.S)
  11. POTASSIUM CITRATE [Concomitant]
     Active Substance: POTASSIUM CITRATE
  12. CETIRIZINE HCL [Concomitant]
     Active Substance: CETIRIZINE HYDROCHLORIDE
  13. AMLODIPINE BESYLATE [Concomitant]
     Active Substance: AMLODIPINE BESYLATE
  14. TRIAMCINOLONE ACETONIDE [Concomitant]
     Active Substance: TRIAMCINOLONE ACETONIDE
  15. WARFARIN SODIUM [Concomitant]
     Active Substance: WARFARIN SODIUM

REACTIONS (4)
  - Muscle injury [Not Recovered/Not Resolved]
  - Nervous system disorder [Not Recovered/Not Resolved]
  - Fall [Not Recovered/Not Resolved]
  - Myalgia [Unknown]

NARRATIVE: CASE EVENT DATE: 20250101
